FAERS Safety Report 4791153-4 (Version None)
Quarter: 2005Q4

REPORT INFORMATION
  Report Type: 
  Country: None (occurrence: None)
  Receive Date: 20051005
  Receipt Date: 20050920
  Transmission Date: 20060501
  Serious: Yes (Death, Hospitalization)
  Sender: FDA-Public Use
  Company Number: GBR-2005-0001734

PATIENT
  Age: 60 Year
  Sex: Female

DRUGS (4)
  1. MORPHINE [Suspect]
     Dosage: ORAL
     Route: 048
  2. GEMZAR [Suspect]
     Indication: LUNG ADENOCARCINOMA
     Dosage: 1558 MG, DAILY, INTRAVENOUS
     Route: 042
     Dates: start: 20050506, end: 20050506
  3. GEMZAR [Suspect]
     Indication: LUNG ADENOCARCINOMA
     Dosage: 1558 MG, DAILY, INTRAVENOUS
     Route: 042
     Dates: start: 20050514, end: 20050514
  4. CISPLATIN [Suspect]
     Indication: LUNG ADENOCARCINOMA
     Dosage: 125 MG, DAILY, INTRAVENOUS
     Route: 042
     Dates: start: 20050506

REACTIONS (10)
  - BLOOD GASES ABNORMAL [None]
  - DRUG HYPERSENSITIVITY [None]
  - DYSPNOEA [None]
  - LIVEDO RETICULARIS [None]
  - OXYGEN SATURATION DECREASED [None]
  - RASH [None]
  - RASH MACULAR [None]
  - RENAL FAILURE ACUTE [None]
  - RESPIRATORY DEPRESSION [None]
  - TACHYCARDIA [None]
